FAERS Safety Report 9285819 (Version 4)
Quarter: 2014Q4

REPORT INFORMATION
  Report Type: Spontaneous
  Country: US (occurrence: US)
  Receive Date: 20130513
  Receipt Date: 20141015
  Transmission Date: 20150529
  Serious: No
  Sender: FDA-Public Use
  Company Number: US-009507513-1305USA006193

PATIENT
  Sex: Male
  Weight: 132.88 kg

DRUGS (1)
  1. PROSCAR [Suspect]
     Active Substance: FINASTERIDE
     Indication: ALOPECIA
     Dosage: 5 MG, UNK
     Route: 048
     Dates: start: 20040916, end: 2007

REACTIONS (15)
  - Fatigue [Unknown]
  - Hypertension [Unknown]
  - Keloid scar [Unknown]
  - Erectile dysfunction [Not Recovered/Not Resolved]
  - Drug administration error [Unknown]
  - Haematuria [Unknown]
  - Upper respiratory tract infection [Unknown]
  - Prostatism [Unknown]
  - Gynaecomastia [Not Recovered/Not Resolved]
  - Sexual dysfunction [Not Recovered/Not Resolved]
  - Hepatic steatosis [Unknown]
  - Blood testosterone decreased [Unknown]
  - Pharyngitis [Unknown]
  - Libido decreased [Unknown]
  - Sleep apnoea syndrome [Unknown]

NARRATIVE: CASE EVENT DATE: 20040916
